FAERS Safety Report 20484190 (Version 1)
Quarter: 2022Q1

REPORT INFORMATION
  Report Type: Spontaneous
  Country: US (occurrence: US)
  Receive Date: 20220217
  Receipt Date: 20220217
  Transmission Date: 20220423
  Serious: No
  Sender: FDA-Public Use
  Company Number: US-009507513-2201USA005553

PATIENT
  Age: 37 Year
  Sex: Female

DRUGS (5)
  1. KEYTRUDA [Suspect]
     Active Substance: PEMBROLIZUMAB
     Indication: Lung adenocarcinoma
     Dosage: UNK, CYCLICAL; 4 CYCLES OF SYSTEMIC THERAPY
  2. KEYTRUDA [Suspect]
     Active Substance: PEMBROLIZUMAB
     Dosage: UNK, CYCLICAL; MAINTENACE PERIOD
  3. PEMETREXED [Suspect]
     Active Substance: PEMETREXED
     Indication: Lung adenocarcinoma
     Dosage: UNK, CYCLICAL; 4 CYCLES OF SYSTEMIC THERAPY
  4. PEMETREXED [Suspect]
     Active Substance: PEMETREXED
     Dosage: UNK, CYCLICAL; MAINTENACE PERIOD
  5. CARBOPLATIN [Concomitant]
     Active Substance: CARBOPLATIN
     Indication: Lung adenocarcinoma
     Dosage: UNK, CYCLICAL; 4 CYCLES OF SYSTEMIC THERAPY

REACTIONS (1)
  - Product use issue [Unknown]
